FAERS Safety Report 12582857 (Version 2)
Quarter: 2016Q3

REPORT INFORMATION
  Report Type: Spontaneous
  Country: BE (occurrence: BE)
  Receive Date: 20160722
  Receipt Date: 20160922
  Transmission Date: 20161109
  Serious: Yes (Other)
  Sender: FDA-Public Use
  Company Number: BE-009507513-1607BEL007275

PATIENT
  Sex: Female

DRUGS (4)
  1. INTRON A [Suspect]
     Active Substance: INTERFERON ALFA-2B
     Indication: HEPATITIS C
     Dosage: 10 MIO, QD
     Dates: start: 199905, end: 1999
  2. INTRON A [Suspect]
     Active Substance: INTERFERON ALFA-2B
     Dosage: 3 MILLION IU, TIW
     Dates: start: 1999, end: 199911
  3. REBETOL [Suspect]
     Active Substance: RIBAVIRIN
     Dosage: 3 MILLION IU, TIW
     Route: 048
     Dates: start: 1999, end: 199911
  4. REBETOL [Suspect]
     Active Substance: RIBAVIRIN
     Indication: HEPATITIS C
     Dosage: 10 MILLION IU, QD
     Route: 048
     Dates: start: 199905, end: 1999

REACTIONS (3)
  - Antiphospholipid syndrome [Unknown]
  - Erythromelalgia [Unknown]
  - Hepatic cirrhosis [Unknown]

NARRATIVE: CASE EVENT DATE: 199911
